FAERS Safety Report 16193892 (Version 1)
Quarter: 2019Q2

REPORT INFORMATION
  Report Type: Spontaneous
  Country: JP (occurrence: JP)
  Receive Date: 20190413
  Receipt Date: 20190413
  Transmission Date: 20190711
  Serious: Yes (Other)
  Sender: FDA-Public Use
  Company Number: JP-009507513-1904JPN001337J

PATIENT
  Age: 33 Year
  Sex: Male

DRUGS (8)
  1. MEROPEN [Concomitant]
     Active Substance: MEROPENEM
     Dosage: UNK
     Route: 065
  2. FILGRASTIM(GENETICAL RECOMBINATION) [Concomitant]
     Active Substance: FILGRASTIM
     Dosage: UNK
     Route: 065
  3. CEFEPIME [Concomitant]
     Active Substance: CEFEPIME HYDROCHLORIDE
     Dosage: UNK
     Route: 065
  4. CYTARABINE. [Concomitant]
     Active Substance: CYTARABINE
     Dosage: UNK
     Route: 065
  5. TEICOPLANIN [Concomitant]
     Active Substance: TEICOPLANIN
     Dosage: UNK
     Route: 065
  6. ACLARUBICIN [Concomitant]
     Active Substance: ACLARUBICIN
     Dosage: UNK
     Route: 065
  7. CUBICIN [Suspect]
     Active Substance: DAPTOMYCIN
     Dosage: UNK
     Route: 042
  8. TAZOBACTAM SODIUM_PIPERACILLIN SODIUM [Concomitant]
     Dosage: UNK
     Route: 065

REACTIONS (4)
  - Anal abscess [Unknown]
  - Pyrexia [Unknown]
  - Systemic candida [Unknown]
  - Diarrhoea [Unknown]
